FAERS Safety Report 6790305-1 (Version None)
Quarter: 2010Q2

REPORT INFORMATION
  Report Type: 
  Country: None (occurrence: None)
  Receive Date: 20100624
  Receipt Date: 20100617
  Transmission Date: 20101027
  Serious: Yes (Hospitalization, Other)
  Sender: FDA-Public Use
  Company Number: US-BRISTOL-MYERS SQUIBB COMPANY-14539324

PATIENT
  Age: 65 Year
  Sex: Male

DRUGS (8)
  1. DAPAGLIFLOZIN [Suspect]
     Indication: TYPE 2 DIABETES MELLITUS
     Route: 048
     Dates: start: 20071030, end: 20090202
  2. METFORMIN HCL [Suspect]
     Indication: TYPE 2 DIABETES MELLITUS
     Dosage: PREVIOSLY TAKEN FROM 02APR05-29OCT07
     Route: 048
     Dates: start: 20071030, end: 20090202
  3. ACTOS [Concomitant]
     Indication: TYPE 2 DIABETES MELLITUS
     Dosage: ACTOS 15;07AUG08-15SEP08(15MG) ACTOS 30;16SEP08-19OCT08(30MG) ACTOS 45;20OCT08-02FEB09(45MG)
     Route: 048
     Dates: start: 20080807, end: 20090202
  4. NIASPAN [Concomitant]
     Indication: HYPERTRIGLYCERIDAEMIA
     Route: 048
     Dates: start: 20051027
  5. PROTONIX [Concomitant]
     Indication: GASTROOESOPHAGEAL REFLUX DISEASE
     Route: 048
     Dates: start: 20030127
  6. HCTZ [Concomitant]
     Indication: HYPERTENSION
     Route: 048
     Dates: start: 20050714
  7. FLONASE [Concomitant]
     Indication: SINUSITIS
     Route: 055
     Dates: start: 20050714
  8. ASPIRIN [Concomitant]
     Indication: CARDIOVASCULAR EVENT PROPHYLAXIS
     Route: 048
     Dates: start: 20051015

REACTIONS (1)
  - ARTERIOSCLEROSIS CORONARY ARTERY [None]
